FAERS Safety Report 9160816 (Version 2)
Quarter: 2013Q1

REPORT INFORMATION
  Report Type: Spontaneous
  Country: JP (occurrence: None)
  Receive Date: 20130220
  Receipt Date: 20130228
  Transmission Date: 20140127
  Serious: No
  Sender: FDA-Public Use
  Company Number: JP-1196594

PATIENT
  Sex: Male

DRUGS (1)
  1. NEVANAC [Suspect]
     Indication: POSTOPERATIVE CARE
     Dosage: (1 GTT QID OPHTHALMIC)
     Dates: start: 20130129, end: 20130205

REACTIONS (1)
  - Corneal erosion [None]
